FAERS Safety Report 7994006-3 (Version None)
Quarter: 2011Q4

REPORT INFORMATION
  Report Type: 
  Country: None (occurrence: None)
  Receive Date: 20111220
  Receipt Date: 20111209
  Transmission Date: 20120403
  Serious: Yes (Congenital Anomaly)
  Sender: FDA-Public Use
  Company Number: GR-ELI_LILLY_AND_COMPANY-EWC041141570

PATIENT
  Sex: Female

DRUGS (6)
  1. FERRUM [Concomitant]
     Dosage: UNK, UNKNOWN
     Route: 064
     Dates: end: 20040525
  2. ZYPREXA [Suspect]
     Indication: SCHIZOPHRENIA
     Dosage: UNK, UNKNOWN
     Route: 064
     Dates: end: 20040525
  3. TROPHICARD [Concomitant]
     Dosage: UNK, UNKNOWN
     Route: 064
     Dates: end: 20040525
  4. LEGOFER [Concomitant]
     Dosage: UNK, UNKNOWN
     Route: 064
     Dates: end: 20040525
  5. FILICINE [Concomitant]
     Dosage: UNK, UNKNOWN
     Route: 064
     Dates: end: 20040525
  6. CALCIUM [Concomitant]
     Dosage: UNK, UNKNOWN
     Route: 064
     Dates: end: 20040525

REACTIONS (2)
  - HIP DYSPLASIA [None]
  - FOETAL EXPOSURE DURING PREGNANCY [None]
